FAERS Safety Report 10024582 (Version 1)
Quarter: 2014Q1

REPORT INFORMATION
  Report Type: Spontaneous
  Country: US (occurrence: None)
  Receive Date: 20140319
  Receipt Date: 20140319
  Transmission Date: 20141002
  Serious: Yes (Hospitalization)
  Sender: FDA-Public Use
  Company Number: None

PATIENT
  Age: 65 Year
  Sex: Male

DRUGS (1)
  1. LAMOTRIGINE [Suspect]
     Dosage: 60 TWICE ORAL
     Route: 048
     Dates: start: 20140313, end: 20140317

REACTIONS (2)
  - Hypoaesthesia oral [None]
  - Hypoaesthesia [None]
